FAERS Safety Report 11947859 (Version 1)
Quarter: 2016Q1

REPORT INFORMATION
  Report Type: Spontaneous
  Country: US (occurrence: US)
  Receive Date: 20160125
  Receipt Date: 20160125
  Transmission Date: 20160526
  Serious: Yes (Hospitalization, Other)
  Sender: FDA-Public Use
  Company Number: US-ELI_LILLY_AND_COMPANY-US201601008127

PATIENT
  Sex: Female

DRUGS (2)
  1. XANAX [Concomitant]
     Active Substance: ALPRAZOLAM
     Indication: SLEEP DISORDER
     Dosage: UNK, PRN
     Route: 065
  2. HUMULIN N [Suspect]
     Active Substance: INSULIN HUMAN
     Indication: PRODUCT USED FOR UNKNOWN INDICATION
     Dosage: UNK, UNKNOWN
     Route: 065

REACTIONS (11)
  - Hyperphagia [Unknown]
  - Strabismus [Recovered/Resolved]
  - Diplopia [Unknown]
  - Ischaemia [Unknown]
  - Nystagmus [Unknown]
  - Therapeutic response decreased [Recovered/Resolved]
  - Papilloedema [Unknown]
  - Blood glucose decreased [Unknown]
  - VIth nerve paralysis [Unknown]
  - Blood glucose increased [Unknown]
  - Toxicologic test abnormal [Unknown]
